FAERS Safety Report 17920899 (Version 1)
Quarter: 2020Q2

REPORT INFORMATION
  Report Type: Report from Study
  Country: US (occurrence: US)
  Receive Date: 20200622
  Receipt Date: 20200622
  Transmission Date: 20200714
  Serious: Yes (Death)
  Sender: FDA-Public Use
  Company Number: US-BEIGENE AUS PTY LTD-BGN-2020-001023

PATIENT

DRUGS (1)
  1. BRUKINSA [Suspect]
     Active Substance: ZANUBRUTINIB
     Indication: MANTLE CELL LYMPHOMA
     Route: 065

REACTIONS (1)
  - Death [Fatal]
